FAERS Safety Report 15746829 (Version 1)
Quarter: 2018Q4

REPORT INFORMATION
  Report Type: Spontaneous
  Country: TR (occurrence: TR)
  Receive Date: 20181220
  Receipt Date: 20181220
  Transmission Date: 20190205
  Serious: Yes (Hospitalization)
  Sender: FDA-Public Use
  Company Number: PHHY2018TR185004

PATIENT
  Age: 85 Year
  Sex: Female

DRUGS (1)
  1. DIGOXIN. [Suspect]
     Active Substance: DIGOXIN
     Indication: PRODUCT USED FOR UNKNOWN INDICATION
     Dosage: 0.25 MG, QD
     Route: 065

REACTIONS (7)
  - Pain in extremity [Unknown]
  - Atrial fibrillation [Unknown]
  - Nausea [Unknown]
  - Thrombosis [Unknown]
  - Toxicity to various agents [Unknown]
  - Vomiting [Unknown]
  - General physical health deterioration [Unknown]
